FAERS Safety Report 7988695-7 (Version None)
Quarter: 2011Q4

REPORT INFORMATION
  Report Type: 
  Country: None (occurrence: None)
  Receive Date: 20111218
  Receipt Date: 20111207
  Transmission Date: 20120403
  Serious: Yes (Death, Life-Threatening)
  Sender: FDA-Public Use
  Company Number: JP-ELI_LILLY_AND_COMPANY-JP201110002857

PATIENT
  Sex: Male
  Weight: 82 kg

DRUGS (23)
  1. ZYPREXA [Suspect]
     Indication: SCHIZOPHRENIA
     Dosage: 20 MG, PRN, AS INSOMNIA
     Route: 048
     Dates: start: 20070619, end: 20070628
  2. PHENOBARBITAL TAB [Concomitant]
     Indication: SCHIZOPHRENIA
     Dosage: 30-80MG, QD
     Route: 048
     Dates: start: 20070620, end: 20070628
  3. TOLOPELON [Concomitant]
     Indication: SCHIZOPHRENIA
     Dosage: 24 MG, QD
     Route: 042
     Dates: start: 20070619, end: 20070628
  4. LODOPIN [Concomitant]
     Indication: SCHIZOPHRENIA
     Dosage: 200 MG, QD
     Route: 048
     Dates: start: 20070625, end: 20070628
  5. RISPERDAL [Concomitant]
     Indication: SCHIZOPHRENIA
     Dosage: 6-10MG, TID
     Route: 048
     Dates: start: 20070619, end: 20070628
  6. PROMAZINE HYDROCHLORIDE [Concomitant]
     Indication: SCHIZOPHRENIA
     Dosage: 100-150MG, TID
     Route: 048
     Dates: start: 20070623, end: 20070628
  7. LEVOMEPROMAZINE MALEATE [Concomitant]
     Indication: SCHIZOPHRENIA
     Dosage: 30-60MG, QD
     Route: 048
     Dates: start: 20070619, end: 20070628
  8. MUCOTRON [Concomitant]
     Indication: PNEUMONIA
     Dosage: 250 MG, TID
     Route: 048
     Dates: start: 20070622, end: 20070628
  9. TEGRETOL [Concomitant]
     Indication: SCHIZOPHRENIA
     Dosage: 700-1200MG, TID
     Route: 048
     Dates: start: 20070620, end: 20070628
  10. PROMETHAZINE HCL [Concomitant]
     Indication: SCHIZOPHRENIA
     Dosage: 100-210MG, TID
     Route: 048
     Dates: start: 20070619, end: 20070628
  11. CLARITHROMYCIN [Concomitant]
     Indication: PNEUMONIA
     Dosage: 200 MG, TID
     Route: 048
     Dates: start: 20070622, end: 20070628
  12. NITRAZEPAM [Concomitant]
     Indication: INSOMNIA
     Dosage: 0.8-1G, QD
     Route: 048
     Dates: start: 20070627, end: 20070628
  13. PANTOSIN [Concomitant]
     Indication: CONSTIPATION
     Dosage: 600 MG, QD
     Route: 048
     Dates: start: 20070626
  14. HALOPERIDOL [Concomitant]
     Indication: SCHIZOPHRENIA
     Dosage: 30 MG, QD
     Route: 042
     Dates: start: 20070620, end: 20070628
  15. SEROQUEL [Concomitant]
     Indication: SCHIZOPHRENIA
     Dosage: 100MG, TID
     Route: 048
     Dates: start: 20070619, end: 20070628
  16. SLOWHEIM [Concomitant]
     Indication: SCHIZOPHRENIA
     Dosage: 10 MG, QD
     Route: 048
     Dates: start: 20070627, end: 20070628
  17. LEVOTOMIN [Concomitant]
     Indication: SCHIZOPHRENIA
     Dosage: 20 MG, QD
     Route: 042
     Dates: start: 20070619, end: 20070628
  18. MAGNESIUM SULFATE [Concomitant]
     Indication: CONSTIPATION
     Dosage: 250 MG, QD
     Route: 048
     Dates: start: 20070626
  19. TIMIPERONE [Concomitant]
     Indication: SCHIZOPHRENIA
     Dosage: 17-25MG, TID
     Route: 048
     Dates: start: 20070619, end: 20070628
  20. VALPROIC ACID [Concomitant]
     Indication: SCHIZOPHRENIA
     Dosage: 600 MG, QD
     Route: 048
     Dates: start: 20070625, end: 20070628
  21. DORAL [Concomitant]
     Indication: SCHIZOPHRENIA
     Dosage: 20 MG, QD
     Route: 048
     Dates: start: 20070627, end: 20070628
  22. LAXOBERON [Concomitant]
     Indication: CONSTIPATION
     Dosage: UNK
     Route: 048
     Dates: start: 20070626
  23. SENNOSIDE [Concomitant]
     Indication: CONSTIPATION
     Dosage: 12 MG, QD
     Route: 048
     Dates: start: 20070626

REACTIONS (4)
  - CARDIO-RESPIRATORY ARREST [None]
  - ILEUS PARALYTIC [None]
  - POSTRESUSCITATION ENCEPHALOPATHY [None]
  - SEPSIS [None]
